FAERS Safety Report 4549316-9 (Version None)
Quarter: 2004Q4

REPORT INFORMATION
  Report Type: 
  Country: None (occurrence: None)
  Receive Date: 20041230
  Receipt Date: 20040617
  Transmission Date: 20050328
  Serious: Yes (Life-Threatening, Other)
  Sender: FDA-Public Use
  Company Number: 04-06-0874

PATIENT
  Age: 63 Year
  Sex: Female

DRUGS (1)
  1. CLOZAPINE [Suspect]
     Indication: SCHIZOPHRENIA, PARANOID TYPE
     Dosage: 450MG QD ORAL
     Route: 048
     Dates: start: 20031001, end: 20040601

REACTIONS (2)
  - AGRANULOCYTOSIS [None]
  - URINARY TRACT INFECTION [None]
